FAERS Safety Report 16372523 (Version 1)
Quarter: 2019Q2

REPORT INFORMATION
  Report Type: Spontaneous
  Country: FR (occurrence: FR)
  Receive Date: 20190530
  Receipt Date: 20190530
  Transmission Date: 20190711
  Serious: Yes (Hospitalization, Other)
  Sender: FDA-Public Use
  Company Number: FR-TOLMAR, INC.-TOLG20192263

PATIENT
  Age: 64 Year
  Sex: Male
  Weight: 81 kg

DRUGS (6)
  1. ACYCLOVIR. [Suspect]
     Active Substance: ACYCLOVIR
     Dosage: DECREASED TO 750 MG
     Route: 065
     Dates: start: 20180401, end: 20180402
  2. ACYCLOVIR. [Suspect]
     Active Substance: ACYCLOVIR
     Dosage: INCREASED TO 15 MG/KG/8 HR (1.2 G)
     Route: 065
     Dates: start: 20180331, end: 20180401
  3. METFORMIN [Concomitant]
     Active Substance: METFORMIN HYDROCHLORIDE
     Indication: TYPE 2 DIABETES MELLITUS
     Dosage: UNKNOWN
     Route: 065
  4. ACYCLOVIR. [Suspect]
     Active Substance: ACYCLOVIR
     Indication: HERPES ZOSTER MENINGOENCEPHALITIS
     Dosage: 1 G
     Route: 042
     Dates: start: 20180403, end: 201804
  5. ACYCLOVIR. [Suspect]
     Active Substance: ACYCLOVIR
     Dosage: 500 MG
     Route: 065
     Dates: start: 20180330, end: 20180331
  6. AMOXICILLIN. [Concomitant]
     Active Substance: AMOXICILLIN
     Indication: PRODUCT USED FOR UNKNOWN INDICATION
     Dosage: 12 G
     Route: 065
     Dates: start: 2018, end: 2018

REACTIONS (7)
  - Acute kidney injury [Recovered/Resolved]
  - Abdominal discomfort [Unknown]
  - Dizziness [Unknown]
  - Confusional state [Recovered/Resolved]
  - Speech disorder [Recovered/Resolved]
  - Aphasia [Recovered/Resolved]
  - Gait disturbance [Recovered/Resolved]

NARRATIVE: CASE EVENT DATE: 2018
